FAERS Safety Report 23283288 (Version 1)
Quarter: 2023Q4

REPORT INFORMATION
  Report Type: Spontaneous
  Country: CA (occurrence: CA)
  Receive Date: 20231211
  Receipt Date: 20231211
  Transmission Date: 20240110
  Serious: Yes (Other)
  Sender: FDA-Public Use
  Company Number: CA-FreseniusKabi-FK202319842

PATIENT
  Age: 73 Year
  Sex: Male
  Weight: 135 kg

DRUGS (24)
  1. PIPERACILLIN AND TAZOBACTAM [Suspect]
     Active Substance: PIPERACILLIN SODIUM\TAZOBACTAM SODIUM
     Indication: Obesity
     Dosage: FORM OF ADMIN. POWDER FOR SOLUTION INTRAVENOUS?ROUTE OF ADMIN. INTRAVENOUS DRIP ( IM )
     Route: 041
  2. PIPERACILLIN AND TAZOBACTAM [Suspect]
     Active Substance: PIPERACILLIN SODIUM\TAZOBACTAM SODIUM
     Indication: Cellulite
  3. ASPIRIN [Concomitant]
     Active Substance: ASPIRIN
     Indication: Product used for unknown indication
     Dosage: FORM OF ADMIN. NOT SPECIFIED?ROUTE: UNKNOWN
  4. ATENOLOL [Concomitant]
     Active Substance: ATENOLOL
     Indication: Product used for unknown indication
     Dosage: FORM OF ADMIN. TABLETS
  5. BENADRYL [Concomitant]
     Active Substance: DIPHENHYDRAMINE HYDROCHLORIDE
     Indication: Product used for unknown indication
     Dosage: FORM OF ADMIN. CAPSULES
  6. CEFTRIAXONE [Concomitant]
     Active Substance: CEFTRIAXONE\CEFTRIAXONE SODIUM
     Indication: Product used for unknown indication
     Dosage: FORM OF ADMIN. POWDER FOR SOLUTION INTRAMUSCULAR
  7. CIPROFLOXACIN [Concomitant]
     Active Substance: CIPROFLOXACIN
     Indication: Product used for unknown indication
     Dosage: FORM OF ADMIN. TABLETS
  8. ELIQUIS [Concomitant]
     Active Substance: APIXABAN
     Indication: Product used for unknown indication
     Dosage: FORM OF ADMIN. TABLETS
  9. FUROSEMIDE [Concomitant]
     Active Substance: FUROSEMIDE
     Indication: Product used for unknown indication
     Dosage: FORM OF ADMIN. TABLETS
  10. GLAXAL BASE CRM [Concomitant]
     Indication: Product used for unknown indication
     Dosage: FORM OF ADMIN. CREAM
  11. INSULIN TORONTO [Concomitant]
     Indication: Product used for unknown indication
     Dosage: FORM OF ADMIN. NOT SPECIFIED
  12. HYDROCHLOROTHIAZIDE\IRBESARTAN [Concomitant]
     Active Substance: HYDROCHLOROTHIAZIDE\IRBESARTAN
     Indication: Product used for unknown indication
     Dosage: FORM OF ADMIN. TABLETS
  13. LAMISIL [Concomitant]
     Active Substance: TERBINAFINE HYDROCHLORIDE
     Indication: Product used for unknown indication
     Dosage: FORM OF ADMIN. NOT SPECIFIED
  14. LATANOPROST [Concomitant]
     Active Substance: LATANOPROST
     Indication: Product used for unknown indication
     Dosage: FORM OF ADMIN. SOLUTION OPHTHALMIC
  15. LEVEMIR [Concomitant]
     Active Substance: INSULIN DETEMIR
     Indication: Product used for unknown indication
     Dosage: FORM OF ADMIN. SOLUTION SUBCUTANEOUS
  16. LUCENTIS [Concomitant]
     Active Substance: RANIBIZUMAB
     Indication: Product used for unknown indication
     Dosage: FORM OF ADMIN. SOLUTION INTRAVITREAL
  17. METFORMIN [Concomitant]
     Active Substance: METFORMIN HYDROCHLORIDE
     Indication: Product used for unknown indication
     Dosage: FORM OF ADMIN. TABLETS
  18. METOPROLOL [Concomitant]
     Active Substance: METOPROLOL
     Indication: Product used for unknown indication
     Dosage: FORM OF ADMIN. TABLETS?ROUTE: UNKNOWN
  19. NOVORAPID [Concomitant]
     Active Substance: INSULIN ASPART
     Indication: Product used for unknown indication
     Dosage: FORM OF ADMIN. SOLUTION SUBCUTANEOUS
  20. PANTOPRAZOLE [Concomitant]
     Active Substance: PANTOPRAZOLE
     Indication: Product used for unknown indication
     Dosage: FORM OF ADMIN. POWDER FOR SOLUTION INTRAVENOUS
  21. PRAVASTATIN SODIUM [Concomitant]
     Active Substance: PRAVASTATIN SODIUM
     Indication: Product used for unknown indication
     Dosage: FORM OF ADMIN. TABLETS
  22. REACTINE [Concomitant]
     Indication: Product used for unknown indication
     Dosage: FORM OF ADMIN. NOT SPECIFIED
  23. TERAZOSIN [Concomitant]
     Active Substance: TERAZOSIN HYDROCHLORIDE
     Indication: Product used for unknown indication
     Dosage: FORM OF ADMIN. TABLETS
  24. XALATAN [Concomitant]
     Active Substance: LATANOPROST
     Indication: Product used for unknown indication
     Dosage: FORM OF ADMIN. SOLUTION OPHTHALMIC

REACTIONS (4)
  - Drug reaction with eosinophilia and systemic symptoms [Recovering/Resolving]
  - Eosinophil count increased [Recovering/Resolving]
  - Rash [Recovering/Resolving]
  - White blood cell count increased [Recovering/Resolving]
